FAERS Safety Report 15094030 (Version 3)
Quarter: 2018Q3

REPORT INFORMATION
  Report Type: Report from Study
  Country: DE (occurrence: DE)
  Receive Date: 20180630
  Receipt Date: 20180723
  Transmission Date: 20181010
  Serious: Yes (Hospitalization)
  Sender: FDA-Public Use
  Company Number: DE-ROCHE-2145119

PATIENT
  Age: 70 Year
  Sex: Male
  Weight: 92.7 kg

DRUGS (3)
  1. PIRFENIDONE. [Suspect]
     Active Substance: PIRFENIDONE
     Dosage: PIRFENIDONE DOSE WAS DOWN?TITRATED DUE TO THE END OF THE STUDY ON 22?06?2018.
     Route: 048
  2. PIRFENIDONE. [Suspect]
     Active Substance: PIRFENIDONE
     Route: 048
     Dates: start: 20170820
  3. PIRFENIDONE. [Suspect]
     Active Substance: PIRFENIDONE
     Indication: PULMONARY FIBROSIS
     Dosage: DATE OF LAST DOSE OF  PRIOR TO SAE: 15/JUN/2018
     Route: 048
     Dates: start: 20160921

REACTIONS (1)
  - Colitis [Recovered/Resolved]

NARRATIVE: CASE EVENT DATE: 20180615
